FAERS Safety Report 4779672-8 (Version None)
Quarter: 2005Q3

REPORT INFORMATION
  Report Type: 
  Country: None (occurrence: None)
  Receive Date: 20050923
  Receipt Date: 20050913
  Transmission Date: 20060218
  Serious: Yes (Hospitalization, Other)
  Sender: FDA-Public Use
  Company Number: 2005121507

PATIENT
  Sex: Male
  Weight: 72.5755 kg

DRUGS (16)
  1. NEURONTIN [Suspect]
     Indication: BACK PAIN
     Dosage: 300 MG (300 MG, 1 IN 1 D)
     Dates: start: 20000101, end: 20040501
  2. BEXTRA [Suspect]
     Indication: ILL-DEFINED DISORDER
     Dates: start: 20040501, end: 20040501
  3. VIOXX [Suspect]
     Indication: ILL-DEFINED DISORDER
     Dates: start: 20000101, end: 20040501
  4. FENTANYL [Suspect]
     Indication: ILL-DEFINED DISORDER
     Dates: start: 20020101, end: 20040501
  5. VICODIN [Suspect]
     Indication: ILL-DEFINED DISORDER
  6. OPIOIDS (OPIOIDS) [Suspect]
     Indication: ILL-DEFINED DISORDER
  7. HYDROCODONE BITARTRATE + ACETAMINOPHEN [Concomitant]
  8. TIZANIDINE HCL [Concomitant]
  9. DOCUSATE SODIUM (DOCUSATE SODIUM) [Concomitant]
  10. AMITRIPTYLINE HCL [Concomitant]
  11. NEXIUM (ESOMEPAZOLE) [Concomitant]
  12. ALLEGRA-D (FEXOFENADINE, PSEUDOEPHEDRINE HYDROCHLORIDE) [Concomitant]
  13. DEXTROMETHORPHAN HYDROBROMIDE [Concomitant]
  14. GUAIPHENESIN (GAUIPHENESIN) [Concomitant]
  15. PHENYLEPHRINE (PHENYLEPPHRINE) [Concomitant]
  16. VIAGRA [Concomitant]

REACTIONS (19)
  - ACCIDENT [None]
  - ALCOHOL POISONING [None]
  - BRAIN DEATH [None]
  - CONFUSIONAL STATE [None]
  - CONSCIOUSNESS FLUCTUATING [None]
  - CONVULSION [None]
  - DYSSTASIA [None]
  - HEADACHE [None]
  - HIATUS HERNIA [None]
  - LOSS OF CONSCIOUSNESS [None]
  - MENTAL STATUS CHANGES [None]
  - MIOSIS [None]
  - OVERDOSE [None]
  - PAIN [None]
  - ROAD TRAFFIC ACCIDENT [None]
  - SOMNOLENCE [None]
  - SPEECH DISORDER [None]
  - SPINAL OSTEOARTHRITIS [None]
  - VISUAL DISTURBANCE [None]
